FAERS Safety Report 19210826 (Version 2)
Quarter: 2021Q2

REPORT INFORMATION
  Report Type: Spontaneous
  Country: US (occurrence: US)
  Receive Date: 20210504
  Receipt Date: 20210526
  Transmission Date: 20210717
  Serious: No
  Sender: FDA-Public Use
  Company Number: US-BIOVITRUM-2021US3307

PATIENT
  Age: 2 Year
  Sex: Male

DRUGS (4)
  1. SYNAGIS [Suspect]
     Active Substance: PALIVIZUMAB
     Dosage: 1.73 ML
     Dates: start: 20210215
  2. SYNAGIS [Suspect]
     Active Substance: PALIVIZUMAB
     Dosage: 1.78 ML
     Dates: start: 20210315
  3. SYNAGIS [Suspect]
     Active Substance: PALIVIZUMAB
     Dosage: 1.70ML
     Dates: start: 20210115
  4. SYNAGIS [Suspect]
     Active Substance: PALIVIZUMAB
     Indication: ANTIVIRAL PROPHYLAXIS
     Dosage: 1.68ML
     Dates: start: 20201203

REACTIONS (1)
  - Respiratory syncytial virus infection [Recovered/Resolved]

NARRATIVE: CASE EVENT DATE: 20210322
